FAERS Safety Report 6692259-5 (Version None)
Quarter: 2010Q2

REPORT INFORMATION
  Report Type: 
  Country: None (occurrence: None)
  Receive Date: 20100419
  Receipt Date: 20100406
  Transmission Date: 20101027
  Serious: Yes (Other)
  Sender: FDA-Public Use
  Company Number: 1000011572

PATIENT
  Age: 24 Year
  Sex: Female

DRUGS (4)
  1. CELEXA [Suspect]
     Dosage: 1 DOSAGE FORMS (1 DOSAGE FORMS, 1 D)
  2. ULTRACET [Suspect]
     Indication: HEADACHE
     Dosage: (1 DOSAGE  FORMS, ONCE)
  3. TYLENOL W/ CODEINE NO. 3 [Suspect]
     Indication: HEADACHE
     Dosage: ORAL
     Route: 048
  4. ORAL CONTRACEPTINE [Concomitant]

REACTIONS (3)
  - DYSKINESIA [None]
  - HEADACHE [None]
  - SEROTONIN SYNDROME [None]
